FAERS Safety Report 6859212-X (Version None)
Quarter: 2010Q3

REPORT INFORMATION
  Report Type: 
  Country: None (occurrence: None)
  Receive Date: 20100719
  Receipt Date: 20080221
  Transmission Date: 20110219
  Serious: No
  Sender: FDA-Public Use
  Company Number: US-PFIZER INC-2008017926

PATIENT
  Sex: Male
  Weight: 113.63 kg

DRUGS (14)
  1. CHANTIX [Suspect]
     Indication: SMOKING CESSATION THERAPY
     Dates: start: 20070101, end: 20070101
  2. DEPAKOTE [Concomitant]
  3. LAMICTAL [Concomitant]
  4. RISPERDAL [Concomitant]
  5. LITHIUM CARBONATE [Concomitant]
  6. WELLBUTRIN [Concomitant]
  7. WELLBUTRIN [Concomitant]
  8. ATIVAN [Concomitant]
  9. SOMA [Concomitant]
  10. TRAMADOL [Concomitant]
  11. VALTREX [Concomitant]
  12. PREVACID [Concomitant]
  13. AMBIEN [Concomitant]
  14. VITAMINS [Concomitant]

REACTIONS (4)
  - ABNORMAL DREAMS [None]
  - CIRCUMSTANCE OR INFORMATION CAPABLE OF LEADING TO MEDICATION ERROR [None]
  - CONSTIPATION [None]
  - FATIGUE [None]
